FAERS Safety Report 6004145-4 (Version None)
Quarter: 2008Q4

REPORT INFORMATION
  Report Type: 
  Country: None (occurrence: None)
  Receive Date: 20081216
  Receipt Date: 20080125
  Transmission Date: 20090506
  Serious: No
  Sender: FDA-Public Use
  Company Number: US-AMGEN-KDL262476

PATIENT
  Sex: Female

DRUGS (3)
  1. ENBREL [Suspect]
     Indication: RHEUMATOID ARTHRITIS
     Route: 058
     Dates: start: 20080117
  2. PLAQUENIL [Concomitant]
  3. ARAVA [Concomitant]
     Dates: start: 20071001

REACTIONS (1)
  - INJECTION SITE PAIN [None]
